FAERS Safety Report 17542743 (Version 3)
Quarter: 2020Q2

REPORT INFORMATION
  Report Type: Report from Study
  Country: CO (occurrence: CO)
  Receive Date: 20200315
  Receipt Date: 20200615
  Transmission Date: 20200713
  Serious: Yes (Other)
  Sender: FDA-Public Use
  Company Number: PHHY2019CO087603

PATIENT
  Age: 40 Year
  Sex: Female
  Weight: 60 kg

DRUGS (3)
  1. KISQALI [Suspect]
     Active Substance: RIBOCICLIB
     Indication: BREAST CANCER METASTATIC
     Dosage: 600 MG (3X200 MG), QD
     Route: 048
     Dates: start: 20190223
  2. CALCIUM [Concomitant]
     Active Substance: CALCIUM
     Indication: BONE DISORDER
     Dosage: 50 MG, QD (STARTED 3 YEARS AGO)
     Route: 048
  3. FEMARA [Suspect]
     Active Substance: LETROZOLE
     Indication: BREAST CANCER METASTATIC
     Dosage: 2.5 MG, QD
     Route: 048
     Dates: start: 20190223

REACTIONS (32)
  - Neutrophil count decreased [Unknown]
  - Malaise [Unknown]
  - Nausea [Unknown]
  - Metastases to thorax [Unknown]
  - Tremor [Unknown]
  - Limb mass [Unknown]
  - Metastases to spine [Unknown]
  - Metastases to lung [Not Recovered/Not Resolved]
  - Chest pain [Unknown]
  - Weight decreased [Unknown]
  - Red blood cell count decreased [Unknown]
  - Alopecia [Unknown]
  - Investigation abnormal [Unknown]
  - Pain in extremity [Unknown]
  - Drug ineffective [Unknown]
  - Decreased immune responsiveness [Unknown]
  - Mass [Unknown]
  - Depression [Unknown]
  - Contrast media allergy [Unknown]
  - Headache [Unknown]
  - Back pain [Recovered/Resolved]
  - Metastasis [Unknown]
  - White blood cell count decreased [Unknown]
  - Dyspnoea [Recovered/Resolved]
  - Monocyte count decreased [Unknown]
  - Product dose omission [Unknown]
  - Lymphocyte count decreased [Unknown]
  - Cytopenia [Unknown]
  - Arthralgia [Unknown]
  - Weight increased [Unknown]
  - Inappropriate schedule of product administration [Unknown]
  - Abdominal pain [Unknown]

NARRATIVE: CASE EVENT DATE: 2019
